FAERS Safety Report 5754077-1 (Version None)
Quarter: 2008Q2

REPORT INFORMATION
  Report Type: 
  Country: None (occurrence: None)
  Receive Date: 20080530
  Receipt Date: 20080523
  Transmission Date: 20081010
  Serious: Yes (Hospitalization, Other)
  Sender: FDA-Public Use
  Company Number: PHHO2007BR14718

PATIENT
  Age: 88 Year
  Sex: Female
  Weight: 78 kg

DRUGS (7)
  1. DIOVAN [Suspect]
     Indication: HYPERTENSION
     Dosage: 160 MG, QD
     Route: 048
  2. AAS [Concomitant]
     Indication: CEREBROVASCULAR ACCIDENT PROPHYLAXIS
     Dosage: 2 TABLETS, QD
  3. CALCIUM SANDOZ [Concomitant]
     Indication: OSTEOPOROSIS
     Dosage: 1 TABLET, QD
  4. CALCIUM SANDOZ [Concomitant]
     Indication: OSTEOPENIA
  5. ALENDRONATE SODIUM [Concomitant]
     Indication: OSTEOPOROSIS
     Dosage: 1 SACHET, QD
  6. VOLTAREN [Concomitant]
     Indication: BONE PAIN
     Dosage: 50MG, PRN
  7. RYTHMOL [Concomitant]
     Indication: ARRHYTHMIA
     Dosage: 1/2 TABLET, BID

REACTIONS (2)
  - BLOOD GLUCOSE INCREASED [None]
  - BLOOD PRESSURE INCREASED [None]
